FAERS Safety Report 8054094-5 (Version None)
Quarter: 2012Q1

REPORT INFORMATION
  Report Type: 
  Country: None (occurrence: None)
  Receive Date: 20120118
  Receipt Date: 20120111
  Transmission Date: 20120608
  Serious: Yes (Other)
  Sender: FDA-Public Use
  Company Number: PHHY2012MA002793

PATIENT
  Age: 2 Year
  Sex: Female

DRUGS (2)
  1. ENALAPRIL MALEATE [Suspect]
     Indication: HYPERTENSION
     Dosage: 0.05 MG/KG, UNK
  2. FUROSEMIDE [Concomitant]
     Indication: SECONDARY HYPERTENSION
     Dosage: 1 MG/KG, UNK

REACTIONS (5)
  - DROOLING [None]
  - ANGIOEDEMA [None]
  - PROTRUSION TONGUE [None]
  - RESPIRATORY DISTRESS [None]
  - SWOLLEN TONGUE [None]
